FAERS Safety Report 4398562-6 (Version None)
Quarter: 2004Q3

REPORT INFORMATION
  Report Type: 
  Country: None (occurrence: None)
  Receive Date: 20040712
  Receipt Date: 20040629
  Transmission Date: 20050211
  Serious: Yes (Life-Threatening, Other)
  Sender: FDA-Public Use
  Company Number: 2004221669CH

PATIENT
  Sex: Female
  Weight: 63 kg

DRUGS (12)
  1. BEXTRA [Suspect]
     Indication: POST PROCEDURAL PAIN
     Dosage: 40 MG,QD, ORAL
     Route: 048
     Dates: start: 20040515, end: 20040517
  2. METHADONE HCL [Suspect]
     Indication: DRUG DEPENDENCE
     Dosage: 47 MG, QD, ORAL
     Route: 048
     Dates: start: 20040426
  3. PHENYTOIN [Concomitant]
  4. TEGRETOL [Concomitant]
  5. NEURONTIN [Concomitant]
  6. CATAPRESAN [Concomitant]
  7. SEROPRAM (CITALOPRAM HYDROBROMIDE) [Concomitant]
  8. SERESTA [Concomitant]
  9. MAGNESIUM [Concomitant]
  10. BETASERC (BETAHISTINE HYDROCHLORIDE) [Concomitant]
  11. CARDIOASPIRIN [Concomitant]
  12. DUPHALAC [Concomitant]

REACTIONS (6)
  - COMA [None]
  - DRUG INTERACTION [None]
  - MIOSIS [None]
  - OVERDOSE [None]
  - RESPIRATORY DEPRESSION [None]
  - THERAPEUTIC RESPONSE INCREASED [None]
